FAERS Safety Report 5757265-3 (Version None)
Quarter: 2008Q2

REPORT INFORMATION
  Report Type: 
  Country: None (occurrence: None)
  Receive Date: 20080603
  Receipt Date: 20080521
  Transmission Date: 20081010
  Serious: Yes (Other)
  Sender: FDA-Public Use
  Company Number: US-ELI_LILLY_AND_COMPANY-US200804003523

PATIENT
  Sex: Female
  Weight: 81.179 kg

DRUGS (4)
  1. FORTEO [Suspect]
     Indication: FRACTURE
     Dosage: 20 UG, DAILY (1/D)
     Dates: start: 20080101, end: 20080101
  2. EVISTA [Suspect]
     Indication: OSTEOPOROSIS
     Dates: start: 20080404
  3. CALCIUM [Concomitant]
  4. PREMPRO [Concomitant]
     Indication: OSTEOPOROSIS

REACTIONS (6)
  - BLOOD PARATHYROID HORMONE DECREASED [None]
  - COMPRESSION FRACTURE [None]
  - HEPATIC CIRRHOSIS [None]
  - HYPERCALCAEMIA [None]
  - MYELODYSPLASTIC SYNDROME [None]
  - TURNER'S SYNDROME [None]
